FAERS Safety Report 18142206 (Version 3)
Quarter: 2023Q1

REPORT INFORMATION
  Report Type: Spontaneous
  Country: US (occurrence: US)
  Receive Date: 20200813
  Receipt Date: 20230215
  Transmission Date: 20230418
  Serious: Yes (Death, Hospitalization, Other)
  Sender: FDA-Public Use
  Company Number: US-PFIZER INC-2020309954

PATIENT
  Age: 64 Year
  Sex: Male
  Weight: 91.63 kg

DRUGS (2)
  1. VYNDAMAX [Suspect]
     Active Substance: TAFAMIDIS
     Indication: Cardiac failure congestive
     Dosage: 61 MG, 1X/DAY (61MG 1 CAPSULE BY MOUTH ONCE A DAY)
     Route: 048
     Dates: start: 202006
  2. VYNDAMAX [Suspect]
     Active Substance: TAFAMIDIS
     Indication: Aortic valve replacement
     Dosage: 61 MG, 1X/DAY (61MG 1 CAPSULE BY MOUTH ONCE A DAY)
     Route: 048
     Dates: start: 202006

REACTIONS (4)
  - Death [Fatal]
  - Hernia [Unknown]
  - Off label use [Unknown]
  - Product use in unapproved indication [Unknown]

NARRATIVE: CASE EVENT DATE: 20200601
